FAERS Safety Report 5239080-2 (Version None)
Quarter: 2007Q1

REPORT INFORMATION
  Report Type: 
  Country: None (occurrence: None)
  Receive Date: 20061208
  Receipt Date: 20050706
  Transmission Date: 20070707
  Serious: Yes (Other)
  Sender: FDA-Public Use
  Company Number: 2005UW10054

PATIENT
  Age: 60 Year
  Sex: Female

DRUGS (2)
  1. CRESTOR [Suspect]
     Indication: BLOOD CHOLESTEROL INCREASED
     Dosage: 10 MG QD PO
     Route: 048
     Dates: start: 20040514, end: 20050401
  2. BLOOD PRESSURE MEDICATIONS [Concomitant]

REACTIONS (3)
  - CARPAL TUNNEL SYNDROME [None]
  - DEMYELINATION [None]
  - GAIT DISTURBANCE [None]
